FAERS Safety Report 12658505 (Version 1)
Quarter: 2016Q3

REPORT INFORMATION
  Report Type: Spontaneous
  Country: US (occurrence: None)
  Receive Date: 20160816
  Receipt Date: 20160816
  Transmission Date: 20161109
  Serious: No
  Sender: FDA-Public Use
  Company Number: None

PATIENT
  Age: 21 Year
  Sex: Male
  Weight: 102.06 kg

DRUGS (2)
  1. EQUATE TRIPLE-MEDICATED SEVERE TOOTHACHE AND GUM RELIEF (EQUATE) [Suspect]
     Active Substance: BENZOCAINE
     Indication: TOOTH DISORDER
     Dates: start: 20160809, end: 20160814
  2. IBUPROFEN. [Concomitant]
     Active Substance: IBUPROFEN

REACTIONS (1)
  - Facial pain [None]

NARRATIVE: CASE EVENT DATE: 20160814
